FAERS Safety Report 25203249 (Version 1)
Quarter: 2025Q2

REPORT INFORMATION
  Report Type: Spontaneous
  Country: FR (occurrence: FR)
  Receive Date: 20250416
  Receipt Date: 20250416
  Transmission Date: 20250716
  Serious: Yes (Other)
  Sender: RECKITT BENCKISER
  Company Number: None

PATIENT

DRUGS (1)
  1. SUBUTEX [Suspect]
     Active Substance: BUPRENORPHINE HYDROCHLORIDE
     Indication: Product used for unknown indication
     Route: 045

REACTIONS (6)
  - Therapy change [Recovering/Resolving]
  - Dyspnoea [Recovering/Resolving]
  - Drug dependence [Recovering/Resolving]
  - Drug withdrawal syndrome [Recovering/Resolving]
  - Tremor [Recovering/Resolving]
  - Intentional product misuse [Recovering/Resolving]
